FAERS Safety Report 13737437 (Version 1)
Quarter: 2017Q3

REPORT INFORMATION
  Report Type: Spontaneous
  Country: US (occurrence: US)
  Receive Date: 20170710
  Receipt Date: 20170710
  Transmission Date: 20171127
  Serious: Yes (Life-Threatening)
  Sender: FDA-Public Use
  Company Number: US-FRESENIUS KABI-FK201705857

PATIENT
  Age: 64 Year
  Sex: Male

DRUGS (4)
  1. TISSUE PLASMINOGEN ACTIVATOR [Suspect]
     Active Substance: ALTEPLASE
     Indication: PULMONARY EMBOLISM
     Route: 065
  2. TISSUE PLASMINOGEN ACTIVATOR [Suspect]
     Active Substance: ALTEPLASE
     Route: 065
  3. TISSUE PLASMINOGEN ACTIVATOR [Suspect]
     Active Substance: ALTEPLASE
     Route: 065
  4. HEPARIN (MANUFACTURER UNKNOWN) [Suspect]
     Active Substance: HEPARIN SODIUM
     Indication: ANTICOAGULANT THERAPY
     Route: 065

REACTIONS (3)
  - Abdominal compartment syndrome [Recovered/Resolved]
  - Haematoma [Recovered/Resolved]
  - Haemorrhage [Recovered/Resolved]
